FAERS Safety Report 26146865 (Version 1)
Quarter: 2025Q4

REPORT INFORMATION
  Report Type: Spontaneous
  Country: CM (occurrence: CM)
  Receive Date: 20251211
  Receipt Date: 20251211
  Transmission Date: 20260118
  Serious: Yes (Life-Threatening, Hospitalization)
  Sender: GALPHARM INTERNATIONAL
  Company Number: CM-MLMSERVICE-20250203-PI388391-00120-1

PATIENT
  Age: 29 Year
  Sex: Male

DRUGS (2)
  1. DICLOFENAC [Suspect]
     Active Substance: DICLOFENAC
     Indication: Skin ulcer
     Dosage: UNKNOWN, UNKNOWN
     Route: 061
  2. DEXAMETHASONE [Suspect]
     Active Substance: DEXAMETHASONE
     Indication: Skin ulcer
     Dosage: UNKNOWN, UNKNOWN
     Route: 065

REACTIONS (6)
  - Shock haemorrhagic [Recovered/Resolved]
  - Upper gastrointestinal haemorrhage [Recovered/Resolved]
  - Duodenal ulcer perforation [Recovered/Resolved]
  - Acute kidney injury [Recovered/Resolved]
  - Hypochromic anaemia [Recovered/Resolved]
  - Pancreatitis [Recovered/Resolved]
